FAERS Safety Report 12196198 (Version 3)
Quarter: 2016Q2

REPORT INFORMATION
  Report Type: Spontaneous
  Country: US (occurrence: US)
  Receive Date: 20160321
  Receipt Date: 20160525
  Transmission Date: 20160815
  Serious: No
  Sender: FDA-Public Use
  Company Number: CHPA2016US003474

PATIENT
  Sex: Male

DRUGS (1)
  1. VOLTAREN [Suspect]
     Active Substance: DICLOFENAC SODIUM
     Indication: ARTHRALGIA
     Route: 061

REACTIONS (4)
  - Product quality issue [Unknown]
  - Drug dispensed to wrong patient [Unknown]
  - Drug ineffective [Unknown]
  - Expired product administered [Unknown]
